FAERS Safety Report 5028426-6 (Version None)
Quarter: 2006Q2

REPORT INFORMATION
  Report Type: 
  Country: None (occurrence: None)
  Receive Date: 20060617
  Receipt Date: 20060612
  Transmission Date: 20061013
  Serious: Yes (Death)
  Sender: FDA-Public Use
  Company Number: 2006AC01096

PATIENT
  Age: 29 Year
  Sex: Male

DRUGS (2)
  1. SEROQUEL [Suspect]
     Route: 048
  2. ETHANOL [Suspect]

REACTIONS (4)
  - ACCIDENTAL DEATH [None]
  - ALCOHOL POISONING [None]
  - DRUG TOXICITY [None]
  - HEPATIC STEATOSIS [None]
